FAERS Safety Report 22069396 (Version 1)
Quarter: 2023Q1

REPORT INFORMATION
  Report Type: Spontaneous
  Country: US (occurrence: US)
  Receive Date: 20230307
  Receipt Date: 20230307
  Transmission Date: 20230417
  Serious: No
  Sender: FDA-Public Use
  Company Number: US-AMNEAL PHARMACEUTICALS-2022-AMRX-04088

PATIENT
  Age: 62 Year
  Sex: Female

DRUGS (1)
  1. RYTARY [Suspect]
     Active Substance: CARBIDOPA\LEVODOPA
     Indication: Product used for unknown indication
     Dosage: 3 CAPSULES, 4 /DAY
     Route: 048

REACTIONS (6)
  - Malaise [Unknown]
  - Gait disturbance [Unknown]
  - Muscle twitching [Unknown]
  - Respiration abnormal [Unknown]
  - Chest discomfort [Unknown]
  - Muscular weakness [Unknown]

NARRATIVE: CASE EVENT DATE: 20221219
